FAERS Safety Report 6279408-8 (Version None)
Quarter: 2009Q3

REPORT INFORMATION
  Report Type: 
  Country: None (occurrence: None)
  Receive Date: 20090723
  Receipt Date: 20090708
  Transmission Date: 20100115
  Serious: Yes (Other)
  Sender: FDA-Public Use
  Company Number: GB-GENENTECH-283936

PATIENT
  Sex: Female
  Weight: 65 kg

DRUGS (1)
  1. XOLAIR [Suspect]
     Indication: ASTHMA
     Dosage: 300 MG, 1/MONTH
     Route: 058
     Dates: start: 20060101

REACTIONS (3)
  - ARTHRALGIA [None]
  - HYPOVITAMINOSIS [None]
  - PAIN IN EXTREMITY [None]
